FAERS Safety Report 8352618-1 (Version None)
Quarter: 2012Q2

REPORT INFORMATION
  Report Type: 
  Country: None (occurrence: None)
  Receive Date: 20120511
  Receipt Date: 20120504
  Transmission Date: 20120825
  Serious: Yes (Other)
  Sender: FDA-Public Use
  Company Number: US-BAYER-2012-044104

PATIENT
  Sex: Female

DRUGS (1)
  1. MIRENA [Suspect]
     Indication: SMEAR CERVIX ABNORMAL
     Dosage: 20 ?G/D, CONT
     Route: 015
     Dates: start: 20110201

REACTIONS (7)
  - ANXIETY [None]
  - WEIGHT DECREASED [None]
  - PALPITATIONS [None]
  - NAUSEA [None]
  - IODINE UPTAKE INCREASED [None]
  - DIZZINESS [None]
  - THYROID DISORDER [None]
